FAERS Safety Report 6617952-1 (Version None)
Quarter: 2010Q1

REPORT INFORMATION
  Report Type: 
  Country: None (occurrence: None)
  Receive Date: 20100223
  Receipt Date: 20091202
  Transmission Date: 20100710
  Serious: Yes (Hospitalization)
  Sender: FDA-Public Use
  Company Number: 8054842

PATIENT
  Sex: Male
  Weight: 82 kg

DRUGS (1)
  1. CERTOLIZUMAB PEGOL/PLACEBO (INVESTIGATIONAL DRUG) [Suspect]
     Indication: RHEUMATOID ARTHRITIS
     Dosage: (400 MG 1X/2 WEEKS, NR OF DOSES: 3 SUBCUTANEOUS); SEE IMAGE
     Route: 058

REACTIONS (1)
  - PANCREATITIS [None]
